FAERS Safety Report 23044418 (Version 1)
Quarter: 2023Q4

REPORT INFORMATION
  Report Type: Spontaneous
  Country: ES (occurrence: ES)
  Receive Date: 20231009
  Receipt Date: 20231009
  Transmission Date: 20240110
  Serious: Yes (Death, Hospitalization)
  Sender: FDA-Public Use
  Company Number: ES-drreddys-LIT/SPN/23/0178461

PATIENT
  Age: 94 Year
  Sex: Male

DRUGS (1)
  1. DAPTOMYCIN [Suspect]
     Active Substance: DAPTOMYCIN
     Indication: Endocarditis

REACTIONS (4)
  - Cardiac failure [Fatal]
  - Condition aggravated [Unknown]
  - Endocarditis [Unknown]
  - Drug ineffective [Unknown]
